FAERS Safety Report 9323895 (Version 1)
Quarter: 2013Q2

REPORT INFORMATION
  Report Type: Spontaneous
  Country: US (occurrence: US)
  Receive Date: 20130603
  Receipt Date: 20130603
  Transmission Date: 20140414
  Serious: Yes (Other)
  Sender: FDA-Public Use
  Company Number: US-JNJFOC-20130513994

PATIENT
  Age: 77 Year
  Sex: Male

DRUGS (5)
  1. BENGAY ULTRA STRENGTH TUBE [Suspect]
     Indication: MUSCULOSKELETAL PAIN
     Dosage: LESS THAN 1/2 INCH
     Route: 061
     Dates: start: 20130519, end: 20130519
  2. DILANTIN [Concomitant]
     Indication: CONVULSION
     Route: 065
  3. LEVETIRACETAM [Concomitant]
     Indication: CONVULSION
     Route: 065
  4. CLONAZEPAM [Concomitant]
     Indication: ANXIETY
     Route: 065
  5. LOSARTAN [Concomitant]
     Indication: HYPERTENSION
     Route: 065

REACTIONS (1)
  - Convulsion [Recovered/Resolved]
